FAERS Safety Report 4806608-3 (Version None)
Quarter: 2005Q4

REPORT INFORMATION
  Report Type: 
  Country: None (occurrence: None)
  Receive Date: 20051019
  Receipt Date: 20050930
  Transmission Date: 20060501
  Serious: Yes (Other)
  Sender: FDA-Public Use
  Company Number: USA0509109627

PATIENT
  Age: 74 Year
  Sex: Female

DRUGS (12)
  1. CYMBALTA [Suspect]
     Indication: DEPRESSION
     Dosage: 90 MG DAY
     Dates: start: 20041101
  2. ZOLOFT [Concomitant]
  3. PROTONIX [Concomitant]
  4. LIPITOR [Concomitant]
  5. TRIAMTERENE AND HYDROCHLOROTHIAZIDE [Concomitant]
  6. QUININE SULFATE [Concomitant]
  7. AMBIEN [Concomitant]
  8. LODINE [Concomitant]
  9. VICODIN [Concomitant]
  10. NORCO [Concomitant]
  11. ASCORBIC ACID [Concomitant]
  12. MULTI-VITAMIN [Concomitant]

REACTIONS (3)
  - GLAUCOMA [None]
  - KNEE ARTHROPLASTY [None]
  - PAIN [None]
